FAERS Safety Report 19488130 (Version 1)
Quarter: 2021Q3

REPORT INFORMATION
  Report Type: Spontaneous
  Country: US (occurrence: US)
  Receive Date: 20210702
  Receipt Date: 20210702
  Transmission Date: 20211014
  Serious: No
  Sender: FDA-Public Use
  Company Number: US-BIODELIVERY SCIENCES INTERNATIONAL-2021BDSI0086

PATIENT
  Age: 42 Year
  Sex: Female
  Weight: 118.04 kg

DRUGS (6)
  1. INSULIN LISPRO [Concomitant]
     Active Substance: INSULIN LISPRO
     Indication: TYPE 2 DIABETES MELLITUS
     Dosage: 1000 UNITS PER ML INJECTION, 10 UNITS
  2. BUPRENORPHINE. [Suspect]
     Active Substance: BUPRENORPHINE
     Route: 002
     Dates: start: 202011, end: 202101
  3. BUPRENORPHINE. [Suspect]
     Active Substance: BUPRENORPHINE
     Route: 002
     Dates: start: 202009, end: 202011
  4. BUPRENORPHINE. [Suspect]
     Active Substance: BUPRENORPHINE
     Indication: PAIN
     Route: 002
     Dates: start: 202007, end: 202009
  5. BUPRENORPHINE. [Suspect]
     Active Substance: BUPRENORPHINE
     Route: 002
     Dates: start: 20210222, end: 20210223
  6. INSULIN GLARGINE [Concomitant]
     Active Substance: INSULIN GLARGINE
     Indication: TYPE 2 DIABETES MELLITUS
     Dosage: 1000 UNITS PER ML INJECTION, 50 UNITS

REACTIONS (8)
  - Nausea [Recovering/Resolving]
  - Disturbance in attention [Recovering/Resolving]
  - Product adhesion issue [Unknown]
  - Lethargy [Recovering/Resolving]
  - Dizziness [Recovering/Resolving]
  - Decreased activity [Recovering/Resolving]
  - Oral administration complication [Unknown]
  - Malaise [Recovering/Resolving]

NARRATIVE: CASE EVENT DATE: 20210222
